FAERS Safety Report 25149141 (Version 1)
Quarter: 2025Q2

REPORT INFORMATION
  Report Type: Report from Study
  Country: US (occurrence: US)
  Receive Date: 20250402
  Receipt Date: 20250402
  Transmission Date: 20250716
  Serious: Yes (Other)
  Sender: ALEXION PHARMACEUTICALS
  Company Number: US-AstraZeneca-CH-00836920A

PATIENT
  Weight: 65.9 kg

DRUGS (14)
  1. OSIMERTINIB [Suspect]
     Active Substance: OSIMERTINIB
     Indication: Lung neoplasm malignant
  2. CIPROFLOXACIN HYDROCHLORIDE [Concomitant]
     Active Substance: CIPROFLOXACIN HYDROCHLORIDE
     Route: 065
  3. COMBIGAN [Concomitant]
     Active Substance: BRIMONIDINE TARTRATE\TIMOLOL MALEATE
     Route: 065
  4. DORZOLAMIDE [Concomitant]
     Active Substance: DORZOLAMIDE
     Route: 065
  5. LUMIGAN [Concomitant]
     Active Substance: BIMATOPROST
     Route: 065
  6. MAGNESIUM [Concomitant]
     Active Substance: MAGNESIUM
     Route: 065
  7. NEBIVOLOL [Concomitant]
     Active Substance: NEBIVOLOL
     Route: 065
  8. PROBIOTICS NOS [Concomitant]
     Active Substance: PROBIOTICS NOS
     Route: 065
  9. TELMISARTAN [Concomitant]
     Active Substance: TELMISARTAN
     Route: 065
  10. VITAMIN D3 [Concomitant]
     Active Substance: CHOLECALCIFEROL
     Route: 065
  11. XARELTO [Concomitant]
     Active Substance: RIVAROXABAN
     Route: 065
  12. VITAMIN K [Concomitant]
     Active Substance: PHYTONADIONE
     Route: 065
  13. LOMOTIL [Concomitant]
     Active Substance: ATROPINE SULFATE\DIPHENOXYLATE HYDROCHLORIDE
     Route: 065
  14. TYLENOL [Concomitant]
     Active Substance: ACETAMINOPHEN
     Route: 065

REACTIONS (4)
  - Urinary tract infection [Unknown]
  - Glaucoma [Unknown]
  - Pain in extremity [Unknown]
  - Diarrhoea [Unknown]
